FAERS Safety Report 4484246-2 (Version None)
Quarter: 2004Q4

REPORT INFORMATION
  Report Type: 
  Country: None (occurrence: None)
  Receive Date: 20041025
  Receipt Date: 20041006
  Transmission Date: 20050328
  Serious: Yes (Hospitalization)
  Sender: FDA-Public Use
  Company Number: JP-GLAXOSMITHKLINE-B0347546A

PATIENT
  Age: 77 Year
  Sex: Female

DRUGS (7)
  1. VALTREX [Suspect]
     Indication: HERPES ZOSTER
     Dosage: 500MG THREE TIMES PER DAY
     Route: 048
     Dates: start: 20040901, end: 20040918
  2. LOBU [Suspect]
     Indication: HERPES ZOSTER
     Route: 048
     Dates: end: 20040918
  3. ALFAROL [Concomitant]
     Indication: OSTEOPOROSIS
     Dosage: .5MG PER DAY
     Route: 048
  4. MAGMITT [Concomitant]
     Indication: CONSTIPATION
     Route: 048
  5. CYANOCOBALAMIN [Concomitant]
     Dosage: 1.5MCG PER DAY
     Route: 048
  6. MEVALOTIN [Concomitant]
     Route: 048
  7. GASTER D [Concomitant]
     Indication: GASTRITIS
     Dosage: 20MG PER DAY
     Route: 048

REACTIONS (6)
  - AZOTAEMIA [None]
  - CREATININE RENAL CLEARANCE DECREASED [None]
  - FEELING ABNORMAL [None]
  - MALAISE [None]
  - NAUSEA [None]
  - RENAL FAILURE ACUTE [None]
